FAERS Safety Report 24317229 (Version 1)
Quarter: 2024Q3

REPORT INFORMATION
  Report Type: Report from Study
  Country: ME (occurrence: ME)
  Receive Date: 20240913
  Receipt Date: 20240913
  Transmission Date: 20241017
  Serious: Yes (Other)
  Sender: ROCHE
  Company Number: ME-ROCHE-10000077860

PATIENT

DRUGS (1)
  1. OCRELIZUMAB [Suspect]
     Active Substance: OCRELIZUMAB
     Indication: Primary progressive multiple sclerosis
     Route: 065

REACTIONS (4)
  - Transaminases increased [Unknown]
  - Urinary tract infection [Unknown]
  - Lymphopenia [Unknown]
  - Cervix carcinoma [Unknown]
